FAERS Safety Report 5076019-7 (Version None)
Quarter: 2006Q3

REPORT INFORMATION
  Report Type: 
  Country: None (occurrence: None)
  Receive Date: 20060808
  Receipt Date: 20060808
  Transmission Date: 20061208
  Serious: No
  Sender: FDA-Public Use
  Company Number: None

PATIENT
  Age: 57 Year
  Sex: Female
  Weight: 67.1324 kg

DRUGS (1)
  1. ISOVUE-370 [Suspect]
     Indication: STRESS
     Dosage: 76 ML
     Dates: start: 20060807

REACTIONS (3)
  - FEELING ABNORMAL [None]
  - NASOPHARYNGEAL DISORDER [None]
  - PRURITUS [None]
